FAERS Safety Report 10786557 (Version 2)
Quarter: 2015Q1

REPORT INFORMATION
  Report Type: Spontaneous
  Country: JP (occurrence: JP)
  Receive Date: 20150211
  Receipt Date: 20150225
  Transmission Date: 20150721
  Serious: Yes (Other)
  Sender: FDA-Public Use
  Company Number: JP-PFIZER INC-2015048969

PATIENT
  Age: 79 Year
  Sex: Male

DRUGS (3)
  1. LENIMEC [Concomitant]
     Active Substance: ENALAPRIL
     Route: 048
  2. NORVASC [Suspect]
     Active Substance: AMLODIPINE BESYLATE
     Route: 048
  3. CARDENALIN [Suspect]
     Active Substance: DOXAZOSIN MESYLATE
     Route: 048

REACTIONS (6)
  - Muscle spasms [Not Recovered/Not Resolved]
  - Muscular weakness [Unknown]
  - Dizziness [Unknown]
  - Back pain [Unknown]
  - Parkinson^s disease [Unknown]
  - Musculoskeletal stiffness [Unknown]
